FAERS Safety Report 5787772-9 (Version None)
Quarter: 2008Q2

REPORT INFORMATION
  Report Type: 
  Country: None (occurrence: None)
  Receive Date: 20080625
  Receipt Date: 20080612
  Transmission Date: 20081010
  Serious: Yes (Other)
  Sender: FDA-Public Use
  Company Number: PHHY2008JP10897

PATIENT
  Age: 79 Year
  Sex: Female

DRUGS (1)
  1. VOLTAREN [Suspect]
     Dosage: 25 MG
     Route: 054
     Dates: start: 20070701, end: 20070701

REACTIONS (1)
  - OCULOMUCOCUTANEOUS SYNDROME [None]
